FAERS Safety Report 24669716 (Version 1)
Quarter: 2024Q4

REPORT INFORMATION
  Report Type: Spontaneous
  Country: CA (occurrence: CA)
  Receive Date: 20241127
  Receipt Date: 20241127
  Transmission Date: 20250114
  Serious: Yes (Other)
  Sender: CSL BEHRING
  Company Number: CA-BEH-2024186112

PATIENT
  Age: 4 Year
  Sex: Male
  Weight: 21 kg

DRUGS (5)
  1. HUMAN C1-ESTERASE INHIBITOR [Suspect]
     Active Substance: HUMAN C1-ESTERASE INHIBITOR
     Indication: Hereditary angioedema with C1 esterase inhibitor deficiency
     Route: 058
  2. ADVATE [Suspect]
     Active Substance: ANTIHEMOPHILIC FACTOR, HUMAN RECOMBINANT
     Indication: Factor VIII deficiency
     Dosage: 1000 IU, TIW
     Route: 065
  3. ADVATE [Suspect]
     Active Substance: ANTIHEMOPHILIC FACTOR, HUMAN RECOMBINANT
     Dosage: 1000 MG, TIW
     Route: 065
  4. ADVATE [Suspect]
     Active Substance: ANTIHEMOPHILIC FACTOR, HUMAN RECOMBINANT
     Dosage: 1000 MG
     Route: 065
  5. EFMOROCTOCOG ALFA [Concomitant]
     Active Substance: EFMOROCTOCOG ALFA
     Indication: Product used for unknown indication

REACTIONS (15)
  - Affect lability [Not Recovered/Not Resolved]
  - Aggression [Not Recovered/Not Resolved]
  - Agitation [Not Recovered/Not Resolved]
  - Anaemia [Not Recovered/Not Resolved]
  - Autism spectrum disorder [Not Recovered/Not Resolved]
  - Drug ineffective [Not Recovered/Not Resolved]
  - Head injury [Not Recovered/Not Resolved]
  - Inappropriate schedule of product administration [Unknown]
  - Infusion site haemorrhage [Not Recovered/Not Resolved]
  - Poor venous access [Not Recovered/Not Resolved]
  - Restlessness [Not Recovered/Not Resolved]
  - Screaming [Not Recovered/Not Resolved]
  - Swelling [Not Recovered/Not Resolved]
  - Wrong technique in product usage process [Unknown]
  - Product use issue [Unknown]
